FAERS Safety Report 14739706 (Version 1)
Quarter: 2018Q2

REPORT INFORMATION
  Report Type: Spontaneous
  Country: PL (occurrence: PL)
  Receive Date: 20180410
  Receipt Date: 20180410
  Transmission Date: 20180711
  Serious: Yes (Other)
  Sender: FDA-Public Use
  Company Number: PL-MERCK KGAA-2045424

PATIENT
  Sex: Female

DRUGS (1)
  1. NOVOTHYROX [Suspect]
     Active Substance: LEVOTHYROXINE SODIUM
     Indication: HYPOTHYROIDISM

REACTIONS (7)
  - Paraesthesia [None]
  - Somnolence [None]
  - Muscular weakness [None]
  - Blood magnesium decreased [None]
  - Yawning [None]
  - Fatigue [None]
  - Blood thyroid stimulating hormone decreased [None]
